FAERS Safety Report 20544490 (Version 6)
Quarter: 2024Q1

REPORT INFORMATION
  Report Type: Spontaneous
  Country: US (occurrence: US)
  Receive Date: 20220303
  Receipt Date: 20240126
  Transmission Date: 20240410
  Serious: Yes (Disabling, Other)
  Sender: FDA-Public Use
  Company Number: US-ORGANON-O2203USA000165

PATIENT
  Sex: Female
  Weight: 106.58 kg

DRUGS (18)
  1. SINGULAIR [Suspect]
     Active Substance: MONTELUKAST SODIUM
     Indication: Asthma
     Dosage: UNK
     Route: 048
     Dates: start: 2006, end: 2012
  2. SINGULAIR [Suspect]
     Active Substance: MONTELUKAST SODIUM
     Dosage: TAKE 1 TABLET BY MOUTH DAILY AT BEDTIME.
     Route: 048
     Dates: start: 20161206
  3. ALBUTEROL SULFATE [Concomitant]
     Active Substance: ALBUTEROL SULFATE
     Indication: Wheezing
     Dosage: 3 MILLILITER, PRN, TAKE 3 ML USING NEBULIZER EVERY 6  HOURS AS NEEDED
  4. PROAIR HFA [Concomitant]
     Active Substance: ALBUTEROL SULFATE
     Indication: Dyspnoea
     Dosage: 2 PUFFS
  5. BENZONATATE [Concomitant]
     Active Substance: BENZONATATE
     Indication: Cough
     Dosage: UNK, Q8H
  6. BENZONATATE [Concomitant]
     Active Substance: BENZONATATE
     Indication: Oropharyngeal pain
  7. CALCIUM CARBONATE\VITAMIN D [Concomitant]
     Active Substance: CALCIUM CARBONATE\VITAMIN D
     Dosage: 1200 MILLIGRAM
     Route: 048
  8. CETIRIZINE [Concomitant]
     Active Substance: CETIRIZINE HYDROCHLORIDE
     Dosage: TAKE 10 MG BY MOUTH.
  9. FLUTICASONE [Concomitant]
     Active Substance: FLUTICASONE
     Dosage: 2 SPRAYS INTO BOTH NOSTRILS DAILY.
     Route: 045
  10. ADVAIR HFA [Concomitant]
     Active Substance: FLUTICASONE PROPIONATE\SALMETEROL XINAFOATE
     Dosage: 1 PUFF  EVERY 12 HOURS.
  11. MAGNESIUM OXIDE [Concomitant]
     Active Substance: MAGNESIUM OXIDE
     Dosage: 400 MILLIGRAM, TAKE 400 MG BY MOUTH.
     Route: 048
  12. METFORMIN [Concomitant]
     Active Substance: METFORMIN HYDROCHLORIDE
     Dosage: 1 DOSAGE FORM, BID
     Route: 048
  13. RIBOFLAVIN [Concomitant]
     Active Substance: RIBOFLAVIN
     Dosage: 100 MILLIGRAM
     Route: 048
  14. SERTRALINE [Concomitant]
     Active Substance: SERTRALINE HYDROCHLORIDE
     Dosage: 2 DOSAGE FORM
     Route: 048
  15. VITAMIN D3 [Concomitant]
     Active Substance: CHOLECALCIFEROL
     Dosage: 1 DOSAGE FORM
     Route: 048
  16. NORTRIPTYLINE [Concomitant]
     Active Substance: NORTRIPTYLINE
     Dosage: 10 MILLIGRAM, TAKE 10MG FOR 2 WEEKS.
  17. MECLIZINE HYDROCHLORIDE [Concomitant]
     Active Substance: MECLIZINE HYDROCHLORIDE
     Dosage: 25 MILLIGRAM, Q8H
  18. RIBOFLAVIN [Concomitant]
     Active Substance: RIBOFLAVIN
     Dosage: 100 MILLIGRAM, TAKE 100 MG BY MOUTH DAILY.
     Route: 048

REACTIONS (27)
  - Neuropsychological symptoms [Not Recovered/Not Resolved]
  - Obsessive-compulsive disorder [Not Recovered/Not Resolved]
  - Anxiety [Recovering/Resolving]
  - Tic [Not Recovered/Not Resolved]
  - Tremor [Not Recovered/Not Resolved]
  - Depression [Recovering/Resolving]
  - Suicidal ideation [Not Recovered/Not Resolved]
  - Major depression [Unknown]
  - Obsessive thoughts [Not Recovered/Not Resolved]
  - Crying [Not Recovered/Not Resolved]
  - Decreased interest [Not Recovered/Not Resolved]
  - Insomnia [Not Recovered/Not Resolved]
  - Panic attack [Not Recovered/Not Resolved]
  - Dissociation [Not Recovered/Not Resolved]
  - Brain fog [Not Recovered/Not Resolved]
  - Anger [Not Recovered/Not Resolved]
  - Irritability [Not Recovered/Not Resolved]
  - Pain [Unknown]
  - Back pain [Unknown]
  - Paraesthesia [Unknown]
  - Hypoaesthesia [Unknown]
  - Neuralgia [Unknown]
  - Gait inability [Unknown]
  - Tachyphrenia [Unknown]
  - Vertigo [Unknown]
  - Vomiting [Unknown]
  - Headache [Unknown]

NARRATIVE: CASE EVENT DATE: 20060101
